FAERS Safety Report 8152149 (Version 4)
Quarter: 2014Q1

REPORT INFORMATION
  Report Type: Spontaneous
  Country: US (occurrence: US)
  Receive Date: 20110922
  Receipt Date: 20140326
  Transmission Date: 20141002
  Serious: No
  Sender: FDA-Public Use
  Company Number: US-ASTRAZENECA-2010SE56800

PATIENT
  Age: 18253 Day
  Sex: Female
  Weight: 59 kg

DRUGS (8)
  1. SEROQUEL XR [Suspect]
     Indication: INSOMNIA
     Route: 048
     Dates: start: 2009, end: 20140204
  2. SEROQUEL XR [Suspect]
     Indication: DEPRESSION
     Route: 048
     Dates: start: 2009, end: 20140204
  3. SEROQUEL XR [Suspect]
     Indication: CONVULSION
     Route: 048
     Dates: start: 2009, end: 20140204
  4. SEROQUEL XR [Suspect]
     Indication: POST-TRAUMATIC STRESS DISORDER
     Route: 048
     Dates: start: 2009, end: 20140204
  5. SEROQUEL XR [Suspect]
     Indication: INSOMNIA
     Route: 048
  6. SEROQUEL XR [Suspect]
     Indication: DEPRESSION
     Route: 048
  7. SEROQUEL XR [Suspect]
     Indication: CONVULSION
     Route: 048
  8. SEROQUEL XR [Suspect]
     Indication: POST-TRAUMATIC STRESS DISORDER
     Route: 048

REACTIONS (10)
  - Malaise [Unknown]
  - Nausea [Unknown]
  - Insomnia [Unknown]
  - Headache [Unknown]
  - Bipolar disorder [Unknown]
  - Feeling abnormal [Unknown]
  - Asthenia [Unknown]
  - Drug dose omission [Unknown]
  - Off label use [Unknown]
  - Medication error [Unknown]
